FAERS Safety Report 10455582 (Version 2)
Quarter: 2018Q3

REPORT INFORMATION
  Report Type: Spontaneous
  Country: US (occurrence: US)
  Receive Date: 20140916
  Receipt Date: 20180913
  Transmission Date: 20181010
  Serious: No
  Sender: FDA-Public Use
  Company Number: US-ASTELLAS-2014US008141

PATIENT
  Sex: Male

DRUGS (1)
  1. XTANDI [Suspect]
     Active Substance: ENZALUTAMIDE
     Indication: HORMONE-REFRACTORY PROSTATE CANCER
     Route: 048
     Dates: start: 20140217, end: 20140708

REACTIONS (6)
  - Agitation [Unknown]
  - Flushing [Recovered/Resolved]
  - Arthralgia [Recovered/Resolved]
  - Vertigo [Recovered/Resolved]
  - Fatigue [Unknown]
  - Gait disturbance [Unknown]
